FAERS Safety Report 25671500 (Version 2)
Quarter: 2025Q3

REPORT INFORMATION
  Report Type: Spontaneous
  Country: US (occurrence: US)
  Receive Date: 20250812
  Receipt Date: 20250828
  Transmission Date: 20251021
  Serious: Yes (Life-Threatening, Hospitalization)
  Sender: TEVA
  Company Number: US-TEVA-VS-3360150

PATIENT
  Age: 18 Year
  Sex: Female

DRUGS (3)
  1. LACTULOSE [Suspect]
     Active Substance: LACTULOSE
     Indication: Faecaloma
     Route: 065
  2. SENNA [Suspect]
     Active Substance: SENNOSIDES
     Indication: Faecaloma
     Route: 065
  3. POLYETHYLENE GLYCOL 3350 [Suspect]
     Active Substance: POLYETHYLENE GLYCOL 3350
     Indication: Faecaloma
     Route: 065

REACTIONS (1)
  - Drug ineffective [Unknown]
